FAERS Safety Report 25994732 (Version 1)
Quarter: 2025Q4

REPORT INFORMATION
  Report Type: Report from Study
  Country: KW (occurrence: KW)
  Receive Date: 20251104
  Receipt Date: 20251104
  Transmission Date: 20260118
  Serious: Yes (Hospitalization, Other)
  Sender: GILEAD
  Company Number: KW-GILEAD-2025-0728022

PATIENT
  Age: 41 Year
  Sex: Female

DRUGS (1)
  1. SACITUZUMAB GOVITECAN-HZIY [Suspect]
     Active Substance: SACITUZUMAB GOVITECAN-HZIY
     Indication: Hormone receptor positive HER2 negative breast cancer
     Dosage: 730 MG
     Route: 042
     Dates: start: 20250817, end: 20250915

REACTIONS (4)
  - Syncope [Unknown]
  - Metastases to central nervous system [Unknown]
  - Product use issue [Unknown]
  - Drug ineffective [Unknown]
